FAERS Safety Report 22100242 (Version 1)
Quarter: 2023Q1

REPORT INFORMATION
  Report Type: Spontaneous
  Country: GB (occurrence: GB)
  Receive Date: 20230315
  Receipt Date: 20230315
  Transmission Date: 20230418
  Serious: Yes (Life-Threatening)
  Sender: FDA-Public Use
  Company Number: GB-JNJFOC-20230333963

PATIENT
  Age: 46 Year
  Sex: Female

DRUGS (1)
  1. YONDELIS [Suspect]
     Active Substance: TRABECTEDIN
     Indication: Extraskeletal myxoid chondrosarcoma
     Dosage: 8 CYCLES
     Route: 042
     Dates: start: 202010

REACTIONS (4)
  - Dyspnoea [Unknown]
  - Left ventricular dysfunction [Unknown]
  - Sinus tachycardia [Unknown]
  - Pleural effusion [Unknown]
